FAERS Safety Report 7688500-2 (Version None)
Quarter: 2011Q3

REPORT INFORMATION
  Report Type: 
  Country: None (occurrence: None)
  Receive Date: 20110817
  Receipt Date: 20110809
  Transmission Date: 20111222
  Serious: Yes (Hospitalization, Disabling, Other)
  Sender: FDA-Public Use
  Company Number: US-NAPPMUNDI-GBR-2011-0008669

PATIENT
  Age: 37 Year
  Sex: Male

DRUGS (16)
  1. TDF [Concomitant]
     Indication: ACQUIRED IMMUNODEFICIENCY SYNDROME
     Dosage: 300 MG, QD PRN
     Route: 065
     Dates: start: 19960101
  2. VITAMIN D [Concomitant]
     Dosage: 800 IU, QD PRN
  3. PROMETHAZINE [Concomitant]
     Dosage: 25 UNK, NOCTE
  4. MS CONTIN [Suspect]
     Indication: PAIN
     Dosage: 100 MG, BID
     Route: 048
  5. ATORVASTATIN [Concomitant]
  6. RITONAVIR [Concomitant]
     Dosage: 100 MG, UNK
     Dates: start: 20070301
  7. PHOSPHATE                          /01318702/ [Concomitant]
     Dosage: 500 MG, BID
  8. ALLOPURINOL [Concomitant]
     Dosage: 100 MG, BID
  9. BUPROPION HCL [Concomitant]
     Dosage: 150 MG, BID
  10. OXYCODONE HCL [Suspect]
     Indication: PAIN
     Route: 065
  11. PERCOCET [Concomitant]
     Dosage: 5/325
  12. COMBIVIR [Concomitant]
     Dosage: 400 MG, BID
  13. PRAVASTATINA [Concomitant]
     Dosage: 10 MG, QD PRN
  14. COLCHICINE [Concomitant]
     Dosage: 0.6 MG, PRN
  15. ATAZANAVIR [Concomitant]
     Dosage: 300 UNK, UNK
     Dates: start: 20070301
  16. CALCIUM CARBONATE [Concomitant]
     Dosage: 500 MG, BID

REACTIONS (9)
  - HYPOKINESIA [None]
  - OSTEOPOROSIS [None]
  - BLOOD BILIRUBIN INCREASED [None]
  - CELLULITIS [None]
  - PAIN [None]
  - MYALGIA [None]
  - BLOOD ALKALINE PHOSPHATASE INCREASED [None]
  - BONE PAIN [None]
  - FRACTURE [None]
